FAERS Safety Report 17550603 (Version 3)
Quarter: 2020Q1

REPORT INFORMATION
  Report Type: Spontaneous
  Country: US (occurrence: US)
  Receive Date: 20200317
  Receipt Date: 20200320
  Transmission Date: 20200409
  Serious: No
  Sender: FDA-Public Use
  Company Number: US-PFIZER INC-2020113302

PATIENT
  Age: 65 Year
  Sex: Female
  Weight: 63.5 kg

DRUGS (1)
  1. ZITHROMAX [Suspect]
     Active Substance: AZITHROMYCIN DIHYDRATE
     Indication: BRONCHITIS
     Dosage: UNK

REACTIONS (6)
  - Abdominal discomfort [Unknown]
  - Diarrhoea [Unknown]
  - Urticaria [Unknown]
  - Muscle spasms [Unknown]
  - Flatulence [Unknown]
  - Rash [Unknown]
